FAERS Safety Report 7700504-X (Version None)
Quarter: 2011Q3

REPORT INFORMATION
  Report Type: 
  Country: None (occurrence: None)
  Receive Date: 20110822
  Receipt Date: 20110810
  Transmission Date: 20111222
  Serious: No
  Sender: FDA-Public Use
  Company Number: US-JNJFOC-20110806138

PATIENT
  Age: 38 Year
  Sex: Female

DRUGS (4)
  1. NAVANE [Concomitant]
     Indication: PSYCHOTIC DISORDER
     Route: 048
  2. INVEGA SUSTENNA [Suspect]
     Indication: MAJOR DEPRESSION
     Route: 030
     Dates: start: 20101108
  3. INVEGA SUSTENNA [Suspect]
     Indication: PSYCHOTIC DISORDER
     Route: 030
     Dates: start: 20101108
  4. LAMOTRIGINE [Concomitant]
     Indication: DRUG THERAPY
     Route: 048

REACTIONS (3)
  - HALLUCINATION, AUDITORY [None]
  - DRUG INEFFECTIVE [None]
  - BLOOD CREATINE PHOSPHOKINASE INCREASED [None]
